FAERS Safety Report 24821250 (Version 3)
Quarter: 2025Q1

REPORT INFORMATION
  Report Type: Spontaneous
  Country: US (occurrence: US)
  Receive Date: 20250108
  Receipt Date: 20250222
  Transmission Date: 20250408
  Serious: No
  Sender: SANOFI AVENTIS
  Company Number: US-SA-2025SA002378

PATIENT
  Age: 61 Year
  Sex: Female

DRUGS (2)
  1. DUPIXENT [Suspect]
     Active Substance: DUPILUMAB
     Indication: Dermatitis atopic
     Dosage: 300 MG, QOW
     Route: 058
     Dates: start: 202412
  2. SKYRIZI [Concomitant]
     Active Substance: RISANKIZUMAB-RZAA

REACTIONS (11)
  - Solar lentigo [Unknown]
  - Skin discolouration [Unknown]
  - Condition aggravated [Unknown]
  - Visual impairment [Unknown]
  - Fatigue [Recovered/Resolved]
  - Eye infection viral [Recovering/Resolving]
  - Headache [Recovering/Resolving]
  - Toothache [Recovered/Resolved]
  - Arthralgia [Recovered/Resolved]
  - Ocular hyperaemia [Recovering/Resolving]
  - Eye pruritus [Recovering/Resolving]

NARRATIVE: CASE EVENT DATE: 20241201
